FAERS Safety Report 14544070 (Version 2)
Quarter: 2018Q1

REPORT INFORMATION
  Report Type: Spontaneous
  Country: AU (occurrence: AU)
  Receive Date: 20180216
  Receipt Date: 20180327
  Transmission Date: 20180509
  Serious: Yes (Other)
  Sender: FDA-Public Use
  Company Number: AU-PFIZER INC-2017520718

PATIENT
  Age: 47 Year
  Sex: Female

DRUGS (1)
  1. XELJANZ [Suspect]
     Active Substance: TOFACITINIB CITRATE
     Indication: RHEUMATOID ARTHRITIS
     Dosage: 5 MG, 2X/DAY
     Dates: start: 20171027

REACTIONS (8)
  - Peripheral swelling [Recovering/Resolving]
  - Therapeutic response unexpected [Unknown]
  - Back pain [Recovering/Resolving]
  - Musculoskeletal pain [Unknown]
  - Muscle spasms [Recovering/Resolving]
  - Hot flush [Recovering/Resolving]
  - Pre-existing condition improved [Unknown]
  - Muscle strain [Recovering/Resolving]

NARRATIVE: CASE EVENT DATE: 201710
